FAERS Safety Report 17949454 (Version 2)
Quarter: 2021Q1

REPORT INFORMATION
  Report Type: Spontaneous
  Country: FR (occurrence: FR)
  Receive Date: 20200625
  Receipt Date: 20210104
  Transmission Date: 20210419
  Serious: Yes (Death, Hospitalization)
  Sender: FDA-Public Use
  Company Number: NVSC2020FR177148

PATIENT
  Age: 20 Year
  Sex: Male
  Weight: 49 kg

DRUGS (6)
  1. CRESEMBA [Suspect]
     Active Substance: ISAVUCONAZONIUM SULFATE
     Indication: MUCORMYCOSIS
     Dosage: 200 MG, QD
     Route: 048
     Dates: end: 20200429
  2. VANCOMYCIN [Suspect]
     Active Substance: VANCOMYCIN
     Indication: VASCULAR DEVICE INFECTION
     Dosage: UNK
     Route: 042
     Dates: start: 20200424, end: 20200427
  3. KIDROLASE [Suspect]
     Active Substance: ASPARAGINASE
     Indication: ACUTE LYMPHOCYTIC LEUKAEMIA
     Dosage: UNK
     Route: 042
     Dates: start: 20200411, end: 20200421
  4. PIPERACILLIN AND TAZOBACTAM [Suspect]
     Active Substance: PIPERACILLIN SODIUM\TAZOBACTAM SODIUM
     Indication: VASCULAR DEVICE INFECTION
     Dosage: 12 G, QD
     Route: 041
     Dates: start: 20200418, end: 20200504
  5. LEVOFLOXACIN. [Suspect]
     Active Substance: LEVOFLOXACIN
     Indication: VASCULAR DEVICE INFECTION
     Dosage: UNK
     Route: 065
     Dates: start: 20200421, end: 20200429
  6. FOSCAVIR [Suspect]
     Active Substance: FOSCARNET SODIUM
     Indication: HERPES SIMPLEX
     Dosage: 4 G, QD
     Route: 042
     Dates: start: 20200422, end: 20200426

REACTIONS (4)
  - Cell death [Not Recovered/Not Resolved]
  - Gamma-glutamyltransferase increased [Recovered/Resolved]
  - Blood alkaline phosphatase increased [Not Recovered/Not Resolved]
  - Blood bilirubin increased [Recovering/Resolving]

NARRATIVE: CASE EVENT DATE: 20200425
